FAERS Safety Report 12408527 (Version 1)
Quarter: 2016Q2

REPORT INFORMATION
  Report Type: Report from Study
  Country: US (occurrence: US)
  Receive Date: 20160526
  Receipt Date: 20160526
  Transmission Date: 20160815
  Serious: No
  Sender: FDA-Public Use
  Company Number: GXBR2015US002483

PATIENT
  Age: 18 Year
  Sex: Male

DRUGS (1)
  1. SOMATROPIN [Suspect]
     Active Substance: SOMATROPIN
     Indication: GROWTH HORMONE DEFICIENCY
     Dosage: 0.039 MG/KG, QD
     Route: 065
     Dates: start: 20110131, end: 20130908

REACTIONS (3)
  - Fatigue [Recovered/Resolved]
  - Concussion [Recovered/Resolved]
  - Decreased activity [Recovered/Resolved]

NARRATIVE: CASE EVENT DATE: 201305
